FAERS Safety Report 22225288 (Version 1)
Quarter: 2023Q2

REPORT INFORMATION
  Report Type: Spontaneous
  Country: CN (occurrence: None)
  Receive Date: 20230418
  Receipt Date: 20230418
  Transmission Date: 20230722
  Serious: Yes (Hospitalization)
  Sender: FDA-Public Use
  Company Number: 2023A086024

PATIENT
  Age: 39 Year
  Sex: Male

DRUGS (6)
  1. TICAGRELOR [Suspect]
     Active Substance: TICAGRELOR
     Indication: Acute myocardial infarction
     Route: 048
     Dates: start: 20210125, end: 20210129
  2. METOPROLOL [Concomitant]
     Active Substance: METOPROLOL
     Indication: Essential hypertension
     Route: 048
     Dates: start: 202103
  3. NIFEDIPINE [Concomitant]
     Active Substance: NIFEDIPINE
     Route: 048
  4. DAPAGLIFLOZIN [Concomitant]
     Active Substance: DAPAGLIFLOZIN
     Indication: Type 2 diabetes mellitus
     Dosage: 10 MG ONCE A DAY
     Route: 048
  5. METFORMIN [Concomitant]
     Active Substance: METFORMIN HYDROCHLORIDE
     Dosage: 0.5G TWICE A DAY
     Route: 048
  6. ASPIRIN [Concomitant]
     Active Substance: ASPIRIN
     Dosage: 100MG , ONCE A DAY
     Route: 048

REACTIONS (2)
  - Vascular stent thrombosis [Unknown]
  - Intentional product misuse [Unknown]
